FAERS Safety Report 13951675 (Version 3)
Quarter: 2018Q1

REPORT INFORMATION
  Report Type: Spontaneous
  Country: US (occurrence: US)
  Receive Date: 20170908
  Receipt Date: 20180223
  Transmission Date: 20180508
  Serious: Yes (Hospitalization, Other)
  Sender: FDA-Public Use
  Company Number: US-DSJP-DSU-2017-135750

PATIENT

DRUGS (2)
  1. BENICAR [Suspect]
     Active Substance: OLMESARTAN MEDOXOMIL
     Dosage: 20 MG, UNK
  2. BENICAR [Suspect]
     Active Substance: OLMESARTAN MEDOXOMIL
     Indication: PRODUCT USED FOR UNKNOWN INDICATION
     Dosage: 40 MG, QD
     Dates: start: 20100818, end: 20130501

REACTIONS (9)
  - Large intestine polyp [Recovered/Resolved]
  - Gastrointestinal haemorrhage [Recovered/Resolved]
  - Erosive duodenitis [Unknown]
  - Diarrhoea [Recovered/Resolved]
  - Gastric ulcer [Unknown]
  - Gastritis erosive [Unknown]
  - Diverticulum intestinal [Unknown]
  - Acute kidney injury [Unknown]
  - Anaemia [Unknown]

NARRATIVE: CASE EVENT DATE: 20110128
